FAERS Safety Report 23774464 (Version 1)
Quarter: 2024Q2

REPORT INFORMATION
  Report Type: Spontaneous
  Country: US (occurrence: None)
  Receive Date: 20240423
  Receipt Date: 20240423
  Transmission Date: 20240716
  Serious: No
  Sender: FDA-Public Use
  Company Number: None

PATIENT
  Age: 80 Year
  Sex: Male

DRUGS (1)
  1. ODOMZO [Suspect]
     Active Substance: SONIDEGIB
     Indication: Basal cell carcinoma
     Dosage: FREQUENCY : DAILY;?
     Dates: start: 202401

REACTIONS (11)
  - Diarrhoea [None]
  - Nausea [None]
  - Heart rate increased [None]
  - Blood pressure decreased [None]
  - Taste disorder [None]
  - Parosmia [None]
  - Decreased appetite [None]
  - Dizziness [None]
  - Balance disorder [None]
  - Gait disturbance [None]
  - Therapy cessation [None]
